FAERS Safety Report 5257676-9 (Version None)
Quarter: 2007Q1

REPORT INFORMATION
  Report Type: 
  Country: None (occurrence: None)
  Receive Date: 20070307
  Receipt Date: 20070228
  Transmission Date: 20070707
  Serious: Yes (Death, Hospitalization, Disabling)
  Sender: FDA-Public Use
  Company Number: 2006UW21621

PATIENT
  Sex: Male
  Weight: 67.7 kg

DRUGS (4)
  1. SEROQUEL [Suspect]
     Route: 048
     Dates: start: 20040601
  2. STELAZINE [Concomitant]
  3. THORAZINE [Concomitant]
  4. ZYPREXA [Concomitant]

REACTIONS (3)
  - DEATH [None]
  - DIABETES MELLITUS INSULIN-DEPENDENT [None]
  - HYPERTENSION [None]
